FAERS Safety Report 21383266 (Version 3)
Quarter: 2022Q4

REPORT INFORMATION
  Report Type: Spontaneous
  Country: US (occurrence: US)
  Receive Date: 20220927
  Receipt Date: 20221019
  Transmission Date: 20230113
  Serious: Yes (Death)
  Sender: FDA-Public Use
  Company Number: US-PFIZER INC-202201188033

PATIENT
  Age: 54 Year
  Sex: Male
  Weight: 77.279 kg

DRUGS (9)
  1. BRAFTOVI [Suspect]
     Active Substance: ENCORAFENIB
     Dosage: 300 MG, DAILY (TAKE 300 MG BY MOUTH DAILY)
     Route: 048
     Dates: start: 202108
  2. PANITUMUMAB [Suspect]
     Active Substance: PANITUMUMAB
     Dosage: UNK
     Dates: start: 202108
  3. LACTOBACILLUS RHAMNOSUS [Concomitant]
     Active Substance: LACTOBACILLUS RHAMNOSUS
     Dosage: I DF, DAILY (TAKE 1 CAPSULE BY MOUTH DAILY)
     Route: 048
  4. LIDOCAINE\PRILOCAINE HYDROCHLORIDE [Concomitant]
     Active Substance: LIDOCAINE\PRILOCAINE HYDROCHLORIDE
     Dosage: UNK, USE 1 APPLICATION AS DIRECTED. PLACE ON PORT SITE 30-40 MINUTES BEFORE IV ACCESS
  5. MAGNESIUM GLUCONATE [Concomitant]
     Active Substance: MAGNESIUM GLUCONATE
     Dosage: 400 MG, 2X/DAY (TAKE 400 MG BY MOUTH 2 TIMES DAILY)
     Route: 048
  6. ONDANSETRON [Concomitant]
     Active Substance: ONDANSETRON
     Indication: Nausea
     Dosage: 8 MG, 3X/DAY
     Route: 048
  7. POTASSIUM CHLORIDE [Concomitant]
     Active Substance: POTASSIUM CHLORIDE
     Dosage: 10 MEQ, 2X/DAY  (TAKE 1 TABLET BY MOUTH TWICE A DAY)
     Route: 048
  8. PROCHLORPERAZINE [Concomitant]
     Active Substance: PROCHLORPERAZINE
     Indication: Nausea
     Dosage: 10 MG, AS NEEDED (TAKE 1 TABLET BY MOUTH EVERY SIX HOURS AS NEEDED FOR NAUSEA)
     Route: 048
  9. SODIUM CHLORIDE [Concomitant]
     Active Substance: SODIUM CHLORIDE
     Dosage: UNK (INFUSE INTO THE VEIN ONCE)
     Route: 042

REACTIONS (3)
  - Neoplasm progression [Fatal]
  - Hypomagnesaemia [Unknown]
  - Fatigue [Unknown]

NARRATIVE: CASE EVENT DATE: 20220327
